FAERS Safety Report 18846141 (Version 1)
Quarter: 2021Q1

REPORT INFORMATION
  Report Type: Spontaneous
  Country: CN (occurrence: CN)
  Receive Date: 20210203
  Receipt Date: 20210203
  Transmission Date: 20210419
  Serious: Yes (Hospitalization)
  Sender: FDA-Public Use
  Company Number: CN-BAXTER-2021BAX002214

PATIENT
  Age: 69 Year
  Sex: Female

DRUGS (8)
  1. PACLITAXEL. [Suspect]
     Active Substance: PACLITAXEL
     Dosage: PACLITAXEL +SODIUM CHLORIDE, DOSE RE?INTRODUCED
     Route: 041
  2. SODIUM CHLORIDE. [Suspect]
     Active Substance: SODIUM CHLORIDE
     Dosage: CYCLOPHOSPHAMIDE + SODIUM CHLORIDE, DOSE RE?INTRODUCED
     Route: 041
  3. ENDOXAN [Suspect]
     Active Substance: CYCLOPHOSPHAMIDE
     Indication: BREAST CANCER STAGE II
     Dosage: 600 MG/M2, FIRST CYCLE ADJUVANT CHEMOTHERAPY WITH TC REGIMEN, CYCLOPHOSPHAMIDE + SODIUM CHLORIDE
     Route: 041
     Dates: start: 20201126, end: 20201126
  4. ENDOXAN [Suspect]
     Active Substance: CYCLOPHOSPHAMIDE
     Dosage: CYCLOPHOSPHAMIDE + SODIUM CHLORIDE, DOSE RE?INTRODUCED
     Route: 041
  5. SODIUM CHLORIDE. [Suspect]
     Active Substance: SODIUM CHLORIDE
     Indication: MEDICATION DILUTION
     Dosage: FIRST CYCLE ADJUVANT CHEMOTHERAPY WITH TC REGIMEN, CYCLOPHOSPHAMIDE + SODIUM CHLORIDE
     Route: 041
     Dates: start: 20201126, end: 20201126
  6. SODIUM CHLORIDE. [Suspect]
     Active Substance: SODIUM CHLORIDE
     Dosage: FIRST CYCLE ADJUVANT CHEMOTHERAPY WITH TC REGIMEN, PACLITAXEL + SODIUM CHLORIDE
     Route: 041
     Dates: start: 20201126, end: 20201126
  7. SODIUM CHLORIDE. [Suspect]
     Active Substance: SODIUM CHLORIDE
     Dosage: PACLITAXEL + SODIUM CHLORIDE, DOSE RE?INTRODUCED
     Route: 041
  8. PACLITAXEL. [Suspect]
     Active Substance: PACLITAXEL
     Indication: BREAST CANCER STAGE II
     Dosage: ALBUMIN?BINDING TYPE, 260MG/M2, 1ST CYCLE ADJUVANT CHEM WITH TC REGIMEN, PACLITAXEL +SODIUM CHLORIDE
     Route: 041
     Dates: start: 20201126, end: 20201126

REACTIONS (4)
  - Dysphagia [Recovering/Resolving]
  - Haematemesis [Recovering/Resolving]
  - Regurgitation [Recovering/Resolving]
  - Nausea [Recovering/Resolving]

NARRATIVE: CASE EVENT DATE: 20201126
